FAERS Safety Report 15427093 (Version 1)
Quarter: 2018Q3

REPORT INFORMATION
  Report Type: Spontaneous
  Country: US (occurrence: US)
  Receive Date: 20180925
  Receipt Date: 20180925
  Transmission Date: 20181010
  Serious: No
  Sender: FDA-Public Use
  Company Number: US-INDIVIOR LIMITED-INDV-109917-2018

PATIENT
  Sex: Female

DRUGS (2)
  1. SUBOXONE [Suspect]
     Active Substance: BUPRENORPHINE HYDROCHLORIDE\NALOXONE HYDROCHLORIDE
     Dosage: LOWERING DOSE (UNK)
     Route: 065
  2. SUBOXONE [Suspect]
     Active Substance: BUPRENORPHINE HYDROCHLORIDE\NALOXONE HYDROCHLORIDE
     Indication: PRODUCT USED FOR UNKNOWN INDICATION
     Dosage: TOTAL OF 6 MG THREE TIMES PER DAY
     Route: 065

REACTIONS (8)
  - Wrong technique in product usage process [Unknown]
  - Adverse event [Unknown]
  - Insomnia [Unknown]
  - Fatigue [Unknown]
  - Product use issue [Unknown]
  - Condition aggravated [Unknown]
  - Obsessive-compulsive disorder [Unknown]
  - Intentional underdose [Unknown]
